FAERS Safety Report 7987261-7 (Version None)
Quarter: 2011Q4

REPORT INFORMATION
  Report Type: 
  Country: None (occurrence: None)
  Receive Date: 20111216
  Receipt Date: 20110922
  Transmission Date: 20120403
  Serious: No
  Sender: FDA-Public Use
  Company Number: US-BRISTOL-MYERS SQUIBB COMPANY-15639693

PATIENT
  Age: 52 Year
  Sex: Female

DRUGS (6)
  1. ABILIFY [Suspect]
     Indication: DEPRESSION
     Dosage: 1DF=15-30MGS STARTED:10JUN05-8JUL05 21APR06-29AUG7 16MONTHS
     Route: 048
     Dates: start: 20060421, end: 20070829
  2. CYMBALTA [Concomitant]
  3. DOXASIN [Concomitant]
  4. ZYPREXA [Concomitant]
  5. ABILIFY [Suspect]
     Indication: BORDERLINE PERSONALITY DISORDER
     Dosage: 1DF=15-30MGS STARTED:10JUN05-8JUL05 21APR06-29AUG7 16MONTHS
     Route: 048
     Dates: start: 20060421, end: 20070829
  6. ADDERALL XR 10 [Concomitant]

REACTIONS (1)
  - TARDIVE DYSKINESIA [None]
